FAERS Safety Report 18322176 (Version 1)
Quarter: 2020Q3

REPORT INFORMATION
  Report Type: Spontaneous
  Country: US (occurrence: US)
  Receive Date: 20200928
  Receipt Date: 20200928
  Transmission Date: 20201103
  Serious: Yes (Hospitalization, Other)
  Sender: FDA-Public Use
  Company Number: US-NORTHSTAR HEALTHCARE HOLDINGS-US-2020NSR000022

PATIENT
  Age: 14 Year
  Sex: Female
  Weight: 51 kg

DRUGS (1)
  1. BACLOFEN. [Suspect]
     Active Substance: BACLOFEN
     Indication: INTENTIONAL OVERDOSE
     Dosage: TOTAL: 1200 MG, SINGLE (SIXTY 20MG TABLETS)
     Route: 065

REACTIONS (8)
  - Areflexia [Recovered/Resolved]
  - Intentional overdose [Unknown]
  - Status epilepticus [Unknown]
  - Coma [Recovered/Resolved]
  - Depressed level of consciousness [Recovered/Resolved]
  - Respiratory failure [Recovered/Resolved]
  - Hypotension [Recovered/Resolved]
  - Toxicity to various agents [Unknown]
